FAERS Safety Report 15596644 (Version 5)
Quarter: 2021Q4

REPORT INFORMATION
  Report Type: Spontaneous
  Country: US (occurrence: US)
  Receive Date: 20181107
  Receipt Date: 20211230
  Transmission Date: 20220303
  Serious: Yes (Hospitalization)
  Sender: FDA-Public Use
  Company Number: US-BIOGEN-2018BI00655155

PATIENT
  Age: 73 Year
  Sex: Female

DRUGS (16)
  1. AVONEX [Suspect]
     Active Substance: INTERFERON BETA-1A
     Indication: Multiple sclerosis
     Route: 050
  2. AVONEX [Suspect]
     Active Substance: INTERFERON BETA-1A
     Route: 050
     Dates: start: 20030805
  3. AVONEX [Suspect]
     Active Substance: INTERFERON BETA-1A
     Route: 050
     Dates: start: 20150224
  4. AVONEX [Suspect]
     Active Substance: INTERFERON BETA-1A
     Indication: Multiple sclerosis
     Route: 030
     Dates: start: 1996
  5. ALENDRONATE SODIUM [Concomitant]
     Active Substance: ALENDRONATE SODIUM
     Indication: Product used for unknown indication
     Route: 050
  6. VITAMIN B12 [Concomitant]
     Active Substance: CYANOCOBALAMIN
     Indication: Product used for unknown indication
     Route: 050
  7. BIOTIN [Concomitant]
     Active Substance: BIOTIN
     Indication: Product used for unknown indication
     Route: 050
  8. C 500 [Concomitant]
     Indication: Product used for unknown indication
     Route: 050
  9. CALCIUM\CHOLECALCIFEROL [Concomitant]
     Active Substance: CALCIUM\CHOLECALCIFEROL
     Indication: Product used for unknown indication
     Route: 050
  10. CALCIUM CITRATE + D3 [Concomitant]
     Indication: Product used for unknown indication
     Route: 050
  11. FERROUS SULFATE [Concomitant]
     Active Substance: FERROUS SULFATE
     Indication: Product used for unknown indication
     Route: 050
  12. GINKGO [Concomitant]
     Active Substance: GINKGO
     Indication: Product used for unknown indication
     Route: 050
  13. ONE-A-DAY ESSENTIAL [Concomitant]
     Indication: Product used for unknown indication
     Route: 050
  14. VITAMIN C [Concomitant]
     Active Substance: ASCORBIC ACID
     Indication: Product used for unknown indication
     Route: 050
  15. Womens Multivitamin and Mineral [Concomitant]
     Indication: Product used for unknown indication
     Route: 050
  16. XANAX [Concomitant]
     Active Substance: ALPRAZOLAM
     Indication: Product used for unknown indication
     Route: 050

REACTIONS (2)
  - Fall [Recovered/Resolved]
  - Upper limb fracture [Recovered/Resolved]

NARRATIVE: CASE EVENT DATE: 20180910
